FAERS Safety Report 7033879-8 (Version None)
Quarter: 2010Q4

REPORT INFORMATION
  Report Type: 
  Country: None (occurrence: None)
  Receive Date: 20101007
  Receipt Date: 20100929
  Transmission Date: 20110411
  Serious: Yes (Other)
  Sender: FDA-Public Use
  Company Number: US-ROXANE LABORATORIES, INC.-2010-RO-01290RO

PATIENT
  Age: 24 Year
  Sex: Female

DRUGS (7)
  1. CITALOPRAM [Suspect]
     Dosage: 10 MG
  2. ALPRAZOLAM INTENSOL [ORAL SOLUTION (CONCENTRATE)] 1 MG/ML [Suspect]
  3. ALPRAZOLAM INTENSOL [ORAL SOLUTION (CONCENTRATE)] 1 MG/ML [Suspect]
  4. SERTRALINE [Suspect]
     Indication: PANIC DISORDER
  5. SERTRALINE [Suspect]
     Dosage: 6.25 MG
  6. SERTRALINE [Suspect]
     Dosage: 12.5 MG
  7. VENLAFAXINE HCL [Suspect]
     Dosage: 37.5 MG

REACTIONS (6)
  - ANXIETY [None]
  - DECREASED APPETITE [None]
  - HEADACHE [None]
  - PANIC ATTACK [None]
  - RESTLESSNESS [None]
  - SEDATION [None]
